FAERS Safety Report 14352347 (Version 1)
Quarter: 2018Q1

REPORT INFORMATION
  Report Type: Spontaneous
  Country: IT (occurrence: IT)
  Receive Date: 20180104
  Receipt Date: 20180104
  Transmission Date: 20180509
  Serious: Yes (Death)
  Sender: FDA-Public Use
  Company Number: IT-ELITE LABORATORIES INC.-2017ELT00022

PATIENT
  Age: 28 Year
  Sex: Female
  Weight: 120 kg

DRUGS (9)
  1. PHENDIMETRAZINE. [Suspect]
     Active Substance: PHENDIMETRAZINE TARTRATE
     Dosage: 120 MG, 1X/DAY
     Route: 065
  2. KCI RETARD [Concomitant]
     Route: 065
  3. GALENIC PRODUCTS [Concomitant]
     Route: 065
  4. BUSPIRONE [Concomitant]
     Active Substance: BUSPIRONE HYDROCHLORIDE
     Route: 065
  5. FLUOXETINE [Concomitant]
     Active Substance: FLUOXETINE HYDROCHLORIDE
     Route: 065
  6. METFORMIN [Concomitant]
     Active Substance: METFORMIN HYDROCHLORIDE
     Route: 065
  7. LIPAXAN [Concomitant]
     Active Substance: FLUVASTATIN SODIUM
     Route: 065
  8. TORASEMIDE AND HYDROCHLOROTHIAZIDE [Concomitant]
     Route: 065
  9. DIPOTASSIUM CLORAZEPATE [Concomitant]
     Active Substance: CLORAZEPATE DIPOTASSIUM
     Route: 065

REACTIONS (2)
  - Myocarditis [Fatal]
  - Sudden cardiac death [Fatal]
